FAERS Safety Report 7760360-0 (Version None)
Quarter: 2011Q3

REPORT INFORMATION
  Report Type: 
  Country: None (occurrence: None)
  Receive Date: 20110919
  Receipt Date: 20110907
  Transmission Date: 20111222
  Serious: Yes (Other)
  Sender: FDA-Public Use
  Company Number: PHHY2011DE80082

PATIENT
  Age: 70 Year
  Sex: Female

DRUGS (5)
  1. RADIATION THERAPY [Concomitant]
  2. PAMIDRONATE DISODIUM [Suspect]
     Indication: OSTEOPOROSIS PROPHYLAXIS
     Dosage: 90 MG
     Route: 042
  3. CHEMOTHERAPEUTICS NOS [Concomitant]
  4. ZOLEDRONIC [Suspect]
     Indication: BREAST CANCER
     Dosage: 4 MG EVERY 3 MONTHS
     Route: 042
  5. ZOLEDRONIC [Suspect]
     Indication: OSTEOPOROSIS

REACTIONS (4)
  - OSTEONECROSIS [None]
  - ULCER [None]
  - CARTILAGE GRAFT [None]
  - BONE DISORDER [None]
